FAERS Safety Report 6803715-0 (Version None)
Quarter: 2010Q2

REPORT INFORMATION
  Report Type: 
  Country: None (occurrence: None)
  Receive Date: 20100628
  Receipt Date: 20100621
  Transmission Date: 20101027
  Serious: Yes (Hospitalization)
  Sender: FDA-Public Use
  Company Number: FR-KINGPHARMUSA00001-K201000787

PATIENT
  Age: 63 Year
  Sex: Female

DRUGS (10)
  1. ALTACE [Suspect]
     Indication: HYPERTENSION
     Dosage: 3.25 MG, QD
     Route: 048
  2. BYETTA [Suspect]
     Indication: TYPE 2 DIABETES MELLITUS
     Dosage: 5 MCG, TID
     Route: 058
     Dates: start: 20100508
  3. ROSUVASTATIN [Suspect]
     Indication: PROPHYLAXIS
     Dosage: 10 MG, QD
     Route: 048
  4. NEXIUM [Suspect]
     Indication: GASTRIC ULCER
     Dosage: 20 MG, QD
     Route: 048
  5. REVATIO [Concomitant]
     Indication: PULMONARY ARTERIAL HYPERTENSION
     Dosage: 60 MG, UNK
     Route: 048
  6. PREVISCAN [Concomitant]
     Indication: ARRHYTHMIA
     Dosage: 20 MG, UNK
     Route: 048
  7. HEMIGOXINE NATIVELLE [Concomitant]
     Indication: CARDIAC FAILURE
     Dosage: 0.125 MG, UNK
     Route: 048
  8. LASIX [Concomitant]
     Indication: CARDIAC FAILURE
     Dosage: 500 MG, UNK
     Route: 048
  9. HUMALOG [Concomitant]
     Indication: TYPE 2 DIABETES MELLITUS
     Dosage: 4.8 IU IN ONE HOUR, UNK
     Route: 058
  10. DIFFU K [Concomitant]
     Indication: BLOOD POTASSIUM DECREASED
     Dosage: 6 DF, UNK
     Route: 048

REACTIONS (4)
  - INFLAMMATION [None]
  - LOCALISED OEDEMA [None]
  - NECK PAIN [None]
  - WEIGHT INCREASED [None]
